FAERS Safety Report 9552587 (Version 3)
Quarter: 2013Q4

REPORT INFORMATION
  Report Type: Spontaneous
  Country: JP (occurrence: JP)
  Receive Date: 20130925
  Receipt Date: 20131014
  Transmission Date: 20140711
  Serious: Yes (Hospitalization, Other)
  Sender: FDA-Public Use
  Company Number: JP-BAYER-201015305BYL

PATIENT
  Age: 74 Year
  Sex: Female
  Weight: 49 kg

DRUGS (3)
  1. NEXAVAR [Suspect]
     Indication: RENAL CELL CARCINOMA
     Route: 048
     Dates: start: 20100809
  2. PIPERACILLIN SODIUM W/TAZOBACTAM SODIUM [Concomitant]
     Indication: THROMBOCYTOPENIA
     Dosage: UNK
     Dates: start: 2010
  3. GRANULOCYTE COLONY-STIMULATING FACTOR NOS [Concomitant]
     Indication: THROMBOCYTOPENIA
     Dosage: UNK
     Dates: start: 2010

REACTIONS (2)
  - Generalised erythema [Recovering/Resolving]
  - Febrile neutropenia [Recovering/Resolving]
